FAERS Safety Report 20036212 (Version 3)
Quarter: 2021Q4

REPORT INFORMATION
  Report Type: Spontaneous
  Country: BR (occurrence: BR)
  Receive Date: 20211105
  Receipt Date: 20211118
  Transmission Date: 20220303
  Serious: Yes (Life-Threatening)
  Sender: FDA-Public Use
  Company Number: None

PATIENT
  Age: 10 Year
  Sex: Female
  Weight: 29 kg

DRUGS (10)
  1. DAPTOMYCIN [Suspect]
     Active Substance: DAPTOMYCIN
     Indication: Device related infection
     Dosage: 7 MG/KG (190 MG), EVERY 24 HOURS
     Route: 042
     Dates: start: 20210211, end: 20210213
  2. METRONIDAZOLE [Suspect]
     Active Substance: METRONIDAZOLE
     Indication: Febrile neutropenia
     Dosage: 40 MG (70ML) EVERY 8 HOURS
     Route: 042
     Dates: start: 20210208, end: 20210220
  3. METRONIDAZOLE [Suspect]
     Active Substance: METRONIDAZOLE
     Indication: Neutropenic colitis
  4. GANCICLOVIR [Suspect]
     Active Substance: GANCICLOVIR
     Indication: Febrile neutropenia
     Dosage: 6 MG/KG (160MG), EVERY 12 HOURS
     Dates: start: 20210129, end: 20210220
  5. GANCICLOVIR [Suspect]
     Active Substance: GANCICLOVIR
     Indication: Cytomegalovirus test
  6. VANCOMYCIN [Suspect]
     Active Substance: VANCOMYCIN
     Indication: Febrile neutropenia
     Dosage: 125 MG (2.5ML), 4 EVERY 6 HOURS
     Route: 048
     Dates: start: 20210211, end: 20210216
  7. VANCOMYCIN [Suspect]
     Active Substance: VANCOMYCIN
     Indication: Neutropenic colitis
  8. VANCOMYCIN [Suspect]
     Active Substance: VANCOMYCIN
     Indication: Clostridium difficile infection
  9. VANCOMYCIN [Suspect]
     Active Substance: VANCOMYCIN
     Indication: Oral candidiasis
  10. DASATINIB [Suspect]
     Active Substance: DASATINIB
     Indication: Acute lymphocytic leukaemia
     Dosage: 4 TABLETS (80MG X 1) EVERY 24 HOURS, ONCE PER DAY
     Route: 048
     Dates: start: 20210207, end: 20210214

REACTIONS (2)
  - Toxic epidermal necrolysis [Recovered/Resolved]
  - Stevens-Johnson syndrome [Recovered/Resolved]

NARRATIVE: CASE EVENT DATE: 20210209
